FAERS Safety Report 5237461-4 (Version None)
Quarter: 2007Q1

REPORT INFORMATION
  Report Type: 
  Country: None (occurrence: None)
  Receive Date: 20070213
  Receipt Date: 20070206
  Transmission Date: 20070707
  Serious: Yes (Death)
  Sender: FDA-Public Use
  Company Number: DE-ROXANE LABORATORIES, INC-2007-BP-00570RO

PATIENT
  Age: 42 Year
  Sex: Female

DRUGS (2)
  1. CITALOPRAM [Suspect]
     Dosage: 1.2 GM X 1 DOSE
     Route: 048
  2. MOCLOBEMIDE [Suspect]
     Dosage: 6 GM X 1 DOSE
     Route: 048

REACTIONS (26)
  - BODY TEMPERATURE INCREASED [None]
  - BRADYCARDIA [None]
  - CARDIAC ARREST [None]
  - CONVULSION [None]
  - DEATH [None]
  - DISORIENTATION [None]
  - DISSEMINATED INTRAVASCULAR COAGULATION [None]
  - DRUG ABUSER [None]
  - EPISTAXIS [None]
  - HAEMATOMA [None]
  - HYPERHIDROSIS [None]
  - HYPERTONIA [None]
  - MOUTH HAEMORRHAGE [None]
  - MULTI-ORGAN FAILURE [None]
  - MYDRIASIS [None]
  - NAUSEA [None]
  - OLIGURIA [None]
  - PALLOR [None]
  - PUPILLARY REFLEX IMPAIRED [None]
  - SEROTONIN SYNDROME [None]
  - SINUS TACHYCARDIA [None]
  - SOMNOLENCE [None]
  - SUICIDE ATTEMPT [None]
  - TRISMUS [None]
  - UNRESPONSIVE TO STIMULI [None]
  - VOMITING [None]
